FAERS Safety Report 7156937-6 (Version None)
Quarter: 2010Q4

REPORT INFORMATION
  Report Type: 
  Country: None (occurrence: None)
  Receive Date: 20101214
  Receipt Date: 20101202
  Transmission Date: 20110411
  Serious: Yes (Other)
  Sender: FDA-Public Use
  Company Number: PHHY2010NO80144

PATIENT
  Sex: Male

DRUGS (3)
  1. SANDOSTATIN LAR [Suspect]
     Indication: METASTASES TO LIVER
     Dosage: 30 MG, EVERY 4 WEEK
     Dates: start: 20091215
  2. CREON [Concomitant]
     Indication: NUTRITIONAL SUPPORT
     Dosage: 10 000 E X 3-4 DAILY
     Dates: start: 20090101
  3. CIALIS [Concomitant]

REACTIONS (3)
  - CATARACT [None]
  - IRIDOCYCLITIS [None]
  - UVEITIS [None]
